FAERS Safety Report 8270547-9 (Version None)
Quarter: 2012Q2

REPORT INFORMATION
  Report Type: 
  Country: None (occurrence: None)
  Receive Date: 20120410
  Receipt Date: 20120403
  Transmission Date: 20120825
  Serious: Yes (Life-Threatening, Hospitalization)
  Sender: FDA-Public Use
  Company Number: DE-BRISTOL-MYERS SQUIBB COMPANY-16284424

PATIENT
  Age: 46 Year
  Sex: Male
  Weight: 47 kg

DRUGS (7)
  1. DEXAMETHASONE [Concomitant]
     Indication: ANTIINFLAMMATORY THERAPY
     Dosage: 1DF: 8 UNITS NOS.
     Dates: start: 20111122, end: 20120125
  2. CETUXIMAB [Suspect]
     Indication: HEAD AND NECK CANCER
     Dosage: STARTED 12JUL11-UNK: 368.25MG. 22NOV11+23NOV11: 604.8MG.
     Dates: start: 20110712
  3. FLUOROURACIL [Suspect]
     Indication: HEAD AND NECK CANCER
     Dosage: STARTED: 12JUL11-UNK 1104MG, 22NOV11+23NOV11: 1512MG.
     Dates: start: 20110712
  4. GRANISETRON HYDROCHLORIDE [Concomitant]
     Indication: ANTIEMETIC SUPPORTIVE CARE
     Dosage: 1DF: 3 UNITS NOS.
     Dates: start: 20111122, end: 20120125
  5. DOCETAXEL [Suspect]
     Indication: HEAD AND NECK CANCER
     Dosage: STARTED: 12JUL11-UNK 44.19MG-UNK, 22NOV11+23NOV11: 60.48MG.
     Dates: start: 20110712
  6. FENISTIL [Concomitant]
     Indication: ANTIALLERGIC THERAPY
     Dosage: 1DF: 1 UNITS NOS.
     Dates: start: 20111122, end: 20120125
  7. CISPLATIN [Suspect]
     Indication: HEAD AND NECK CANCER
     Dosage: STARTED: 12JUL11-UNK 33.14MG, 22NOV11+23NOV11: 45.36MG.
     Dates: start: 20110712

REACTIONS (2)
  - NEUTROPENIA [None]
  - LEUKOPENIA [None]
